FAERS Safety Report 7456595-7 (Version None)
Quarter: 2011Q2

REPORT INFORMATION
  Report Type: 
  Country: None (occurrence: None)
  Receive Date: 20110503
  Receipt Date: 20110502
  Transmission Date: 20111010
  Serious: Yes (Hospitalization)
  Sender: FDA-Public Use
  Company Number: US-PFIZER INC-2011090232

PATIENT
  Sex: Female
  Weight: 56.69 kg

DRUGS (6)
  1. CHANTIX [Suspect]
     Indication: SMOKING CESSATION THERAPY
     Dosage: 0.5 MG, DAILY
  2. CHANTIX [Suspect]
     Dosage: 1 MG, 2X/DAY
  3. SOMA [Concomitant]
     Indication: MUSCULOSKELETAL DISCOMFORT
     Dosage: 350 MG, 2X/DAY
     Route: 048
  4. VICODIN [Concomitant]
     Indication: MUSCULOSKELETAL DISCOMFORT
     Dosage: 5 MG, 3X/DAY
     Route: 048
  5. NICOTROL [Suspect]
     Indication: SMOKING CESSATION THERAPY
     Dosage: UNK
     Route: 055
  6. ZITHROMAX [Concomitant]
     Indication: PNEUMONIA
     Dosage: UNK, DAILY

REACTIONS (3)
  - DEPRESSION [None]
  - VOMITING [None]
  - GASTROINTESTINAL DISORDER [None]
